FAERS Safety Report 7221016-6 (Version None)
Quarter: 2011Q1

REPORT INFORMATION
  Report Type: 
  Country: None (occurrence: None)
  Receive Date: 20110112
  Receipt Date: 20110104
  Transmission Date: 20110831
  Serious: Yes (Other)
  Sender: FDA-Public Use
  Company Number: ES-PFIZER INC-2011002156

PATIENT
  Age: 76 Year
  Sex: Male

DRUGS (1)
  1. LYRICA [Suspect]
     Indication: NEURALGIA
     Dosage: 150 MG, 2X/DAY
     Route: 065
     Dates: start: 20100101

REACTIONS (5)
  - CHILLS [None]
  - ALCOHOL INTERACTION [None]
  - PAIN [None]
  - PAIN IN EXTREMITY [None]
  - RESPIRATORY DISTRESS [None]
